FAERS Safety Report 8968054 (Version 3)
Quarter: 2013Q2

REPORT INFORMATION
  Report Type: Report from Study
  Country: JP (occurrence: JP)
  Receive Date: 20121218
  Receipt Date: 20130621
  Transmission Date: 20140414
  Serious: Yes (Hospitalization)
  Sender: FDA-Public Use
  Company Number: JP-JNJFOC-20121206889

PATIENT
  Age: 44 Year
  Sex: Male
  Weight: 53 kg

DRUGS (8)
  1. STELARA [Suspect]
     Indication: PSORIATIC ARTHROPATHY
     Route: 058
     Dates: start: 20120501, end: 20120521
  2. LORFENAMIN [Concomitant]
     Route: 048
  3. MUCOSTA [Concomitant]
     Route: 065
  4. LOXONIN [Concomitant]
     Route: 061
  5. PRAVASTAN [Concomitant]
     Route: 048
  6. DERMOVATE [Concomitant]
     Route: 065
  7. OXAROL [Concomitant]
     Route: 065
  8. ETRETINATE [Concomitant]
     Dates: start: 20091211, end: 20121210

REACTIONS (2)
  - Acute myeloid leukaemia [Recovered/Resolved]
  - Disseminated intravascular coagulation [Recovering/Resolving]
